FAERS Safety Report 6566140-6 (Version None)
Quarter: 2010Q1

REPORT INFORMATION
  Report Type: 
  Country: None (occurrence: None)
  Receive Date: 20100202
  Receipt Date: 20100125
  Transmission Date: 20100710
  Serious: Yes (Hospitalization, Other)
  Sender: FDA-Public Use
  Company Number: US-JNJFOC-20091202243

PATIENT
  Sex: Female
  Weight: 63.5 kg

DRUGS (9)
  1. DURAGESIC-100 [Suspect]
     Indication: COMPLEX REGIONAL PAIN SYNDROME
     Route: 062
     Dates: start: 20000101, end: 20091125
  2. DURAGESIC-100 [Suspect]
     Route: 062
  3. FLEXERIL [Concomitant]
     Indication: MUSCLE SPASMS
     Route: 048
  4. VISTARIL [Concomitant]
     Indication: MUSCLE SPASMS
     Route: 048
  5. NORCO [Concomitant]
     Indication: PAIN
     Dosage: DOSE: 10/325 MG
     Route: 048
  6. VALIUM [Concomitant]
     Indication: PAIN
     Route: 048
  7. TRILEPTAL [Concomitant]
     Indication: COMPLEX REGIONAL PAIN SYNDROME
     Route: 048
  8. LIDODERM [Concomitant]
     Route: 062
  9. DILAUDID [Concomitant]
     Indication: PAIN
     Route: 048

REACTIONS (10)
  - APPLICATION SITE EROSION [None]
  - APPLICATION SITE VESICLES [None]
  - CARDIOVERSION [None]
  - DRUG EFFECT INCREASED [None]
  - DRUG INEFFECTIVE [None]
  - PAIN [None]
  - PRODUCT ADHESION ISSUE [None]
  - SOMNOLENCE [None]
  - WEIGHT INCREASED [None]
  - WRONG TECHNIQUE IN DRUG USAGE PROCESS [None]
